FAERS Safety Report 6026542-3 (Version None)
Quarter: 2009Q1

REPORT INFORMATION
  Report Type: 
  Country: None (occurrence: None)
  Receive Date: 20090102
  Receipt Date: 20081222
  Transmission Date: 20090719
  Serious: Yes (Hospitalization, Other)
  Sender: FDA-Public Use
  Company Number: DE-PFIZER INC-2008157039

PATIENT

DRUGS (7)
  1. AMPICILLIN SODIUM/SULBACTAM SODIUM [Suspect]
     Indication: PNEUMONIA
     Dosage: 2 G, 3X/DAY
     Route: 042
     Dates: start: 20081116, end: 20081118
  2. BISOPROLOL FUMARATE [Concomitant]
     Dosage: UNK
  3. CLINDAMYCIN [Concomitant]
     Indication: PNEUMONIA
     Dosage: 600 MG, 3X/DAY
     Route: 042
     Dates: start: 20081113, end: 20081101
  4. ESOMEPRAZOLE [Concomitant]
     Dosage: 40 MG, 1X/DAY
     Route: 042
     Dates: end: 20081101
  5. GENTAMYCIN SULFATE [Concomitant]
     Indication: PNEUMONIA
     Dosage: 240 MG, 1X/DAY
     Route: 042
     Dates: start: 20081116, end: 20081118
  6. JODID [Concomitant]
     Dosage: UNK
  7. METOCLOPRAMIDE HYDROCHLORIDE [Concomitant]
     Dosage: 20 GTT, 3X/DAY

REACTIONS (5)
  - CHILLS [None]
  - HYPERTENSION [None]
  - PYREXIA [None]
  - TACHYCARDIA [None]
  - TREMOR [None]
